FAERS Safety Report 5727279-8 (Version None)
Quarter: 2008Q2

REPORT INFORMATION
  Report Type: 
  Country: None (occurrence: None)
  Receive Date: 20080505
  Receipt Date: 20080423
  Transmission Date: 20081010
  Serious: Yes (Hospitalization, Other)
  Sender: FDA-Public Use
  Company Number: DE-AMGEN-UK274114

PATIENT
  Sex: Female
  Weight: 77 kg

DRUGS (2)
  1. KINERET [Suspect]
     Indication: PRE-EXISTING DISEASE
     Route: 058
     Dates: start: 20080401, end: 20080427
  2. L-THYROXIN [Concomitant]
     Route: 048

REACTIONS (3)
  - ANGIOEDEMA [None]
  - INJECTION SITE INFLAMMATION [None]
  - URTICARIA [None]
